FAERS Safety Report 12352034 (Version 1)
Quarter: 2016Q2

REPORT INFORMATION
  Report Type: Spontaneous
  Country: US (occurrence: US)
  Receive Date: 20160510
  Receipt Date: 20160510
  Transmission Date: 20160815
  Serious: Yes (Other)
  Sender: FDA-Public Use
  Company Number: US-BAYER-2016-089583

PATIENT
  Sex: Female

DRUGS (1)
  1. MIRENA [Suspect]
     Active Substance: LEVONORGESTREL
     Dosage: UNK
     Dates: start: 20130204

REACTIONS (2)
  - Genital haemorrhage [Not Recovered/Not Resolved]
  - Haemorrhagic anaemia [Not Recovered/Not Resolved]

NARRATIVE: CASE EVENT DATE: 2015
